FAERS Safety Report 5782685-0 (Version None)
Quarter: 2008Q2

REPORT INFORMATION
  Report Type: 
  Country: None (occurrence: None)
  Receive Date: 20080619
  Receipt Date: 20080619
  Transmission Date: 20081010
  Serious: Yes (Death)
  Sender: FDA-Public Use
  Company Number: None

PATIENT
  Sex: Male

DRUGS (7)
  1. REVLIMID [Suspect]
     Indication: MULTIPLE MYELOMA
     Dosage: 10MG DAILY 21D/28D PO
     Route: 048
  2. HYDROMORPHONE HCL [Concomitant]
  3. COMPAZINE [Concomitant]
  4. MORPHINE [Concomitant]
  5. METOPROLOL SUCCINATE [Concomitant]
  6. CELEBREX [Concomitant]
  7. DEXAMETHASONE [Concomitant]

REACTIONS (7)
  - APNOEA [None]
  - CARDIAC ARREST [None]
  - COMPLETED SUICIDE [None]
  - DEPRESSION [None]
  - INTENTIONAL SELF-INJURY [None]
  - PAIN [None]
  - SUICIDAL IDEATION [None]
